FAERS Safety Report 6852412-4 (Version None)
Quarter: 2010Q3

REPORT INFORMATION
  Report Type: 
  Country: None (occurrence: None)
  Receive Date: 20100717
  Receipt Date: 20071113
  Transmission Date: 20110219
  Serious: No
  Sender: FDA-Public Use
  Company Number: US-PFIZER INC-2007097090

PATIENT
  Sex: Female

DRUGS (3)
  1. CHANTIX [Suspect]
  2. METHADONE HCL [Concomitant]
  3. PAXIL [Concomitant]

REACTIONS (5)
  - FATIGUE [None]
  - HYPERHIDROSIS [None]
  - INFLUENZA LIKE ILLNESS [None]
  - NAUSEA [None]
  - TREMOR [None]
